FAERS Safety Report 10235173 (Version 1)
Quarter: 2014Q2

REPORT INFORMATION
  Report Type: Spontaneous
  Country: US (occurrence: None)
  Receive Date: 20140612
  Receipt Date: 20140612
  Transmission Date: 20141212
  Serious: No
  Sender: FDA-Public Use
  Company Number: None

PATIENT
  Age: 89 Year
  Sex: Female
  Weight: 47.63 kg

DRUGS (8)
  1. DIAZEPAM VALIUM [Suspect]
     Indication: ANXIETY
     Dosage: 10 MG?30?1 TWICE DAILY?MOUTH-DISSOLVE
     Route: 048
     Dates: start: 20140113, end: 201405
  2. SYNTHROID [Concomitant]
  3. PROPRANOLOL [Concomitant]
  4. LOVASTATIN [Concomitant]
  5. TYLENOL [Concomitant]
  6. ASPIRIN [Concomitant]
  7. BENEDRYL [Concomitant]
  8. PREDNISONE [Concomitant]

REACTIONS (3)
  - Hallucination [None]
  - Product physical issue [None]
  - Product quality issue [None]
